FAERS Safety Report 23118079 (Version 1)
Quarter: 2023Q4

REPORT INFORMATION
  Report Type: Spontaneous
  Country: US (occurrence: US)
  Receive Date: 20231027
  Receipt Date: 20231027
  Transmission Date: 20240110
  Serious: No
  Sender: FDA-Public Use
  Company Number: US-JUBILANT CADISTA PHARMACEUTICALS-2023JUB00096

PATIENT

DRUGS (4)
  1. OLANZAPINE [Suspect]
     Active Substance: OLANZAPINE
     Dosage: UNK
     Dates: end: 20230116
  2. OLANZAPINE [Suspect]
     Active Substance: OLANZAPINE
     Dosage: 20 MG, EVERY 48 HOURS (EVERY OTHER DAY)
     Dates: start: 20230117, end: 202302
  3. OLANZAPINE [Suspect]
     Active Substance: OLANZAPINE
     Dosage: SPORADICALLY WENT DOWN TO NOTHING
     Dates: start: 202302, end: 202302
  4. OLANZAPINE [Suspect]
     Active Substance: OLANZAPINE
     Dosage: UNK
     Dates: start: 20230214, end: 20230215

REACTIONS (6)
  - Withdrawal syndrome [Unknown]
  - Hypophagia [Unknown]
  - Nervousness [Unknown]
  - Tobacco abuse [Unknown]
  - Vomiting [Recovering/Resolving]
  - Inappropriate schedule of product administration [Recovered/Resolved]

NARRATIVE: CASE EVENT DATE: 20230101
